FAERS Safety Report 6306412-3 (Version None)
Quarter: 2009Q3

REPORT INFORMATION
  Report Type: 
  Country: None (occurrence: None)
  Receive Date: 20090806
  Receipt Date: 20081001
  Transmission Date: 20100115
  Serious: Yes (Hospitalization)
  Sender: FDA-Public Use
  Company Number: 1-16700634

PATIENT
  Age: 74 Year
  Sex: Female

DRUGS (9)
  1. BACTRIM [Suspect]
     Indication: ANTIBIOTIC THERAPY
     Dates: start: 20080421
  2. ASPIRIN [Concomitant]
  3. ACETAMINOPHEN [Concomitant]
  4. FEXOFENADINE HYDROCHLORIDE [Concomitant]
  5. LORATADINE [Concomitant]
  6. SETRALINE HYDROCHLORIDE [Concomitant]
  7. CALCIUM [Concomitant]
  8. MULTI-VITAMIN [Concomitant]
  9. PSEUDOEPHEDRINE HYDROCHLORIDE [Concomitant]

REACTIONS (1)
  - DERMATITIS ALLERGIC [None]
